FAERS Safety Report 7912105-9 (Version None)
Quarter: 2011Q4

REPORT INFORMATION
  Report Type: 
  Country: None (occurrence: None)
  Receive Date: 20111114
  Receipt Date: 20111108
  Transmission Date: 20120403
  Serious: Yes (Hospitalization)
  Sender: FDA-Public Use
  Company Number: DE-ROCHE-730125

PATIENT
  Sex: Male
  Weight: 49 kg

DRUGS (10)
  1. MOVIPREP [Concomitant]
     Indication: CONSTIPATION
     Route: 048
  2. ACETYLCYSTEINE [Concomitant]
     Indication: CHRONIC OBSTRUCTIVE PULMONARY DISEASE
     Route: 048
     Dates: start: 20100812, end: 20101216
  3. OXALIPLATIN [Suspect]
     Dosage: LAST DOSE PRIOR TO PRE OPERATIVE SURGERY: 31 MAY 2010.
     Route: 042
  4. PANTOPRAZOLE [Concomitant]
     Indication: PROPHYLAXIS
     Dosage: DRUG REPORTED AS PANTOZOL 40
     Route: 048
  5. XELODA [Suspect]
     Indication: RECTAL CANCER
     Dosage: 825 MG/M2 ON DAY 1-33 W/O WEEKEND + OPTIONAL BOOST. LAST DOSE PRIOR TO SAE:17 MAY 2010
     Route: 048
     Dates: start: 20100426, end: 20100517
  6. OXALIPLATIN [Suspect]
     Indication: RECTAL CANCER
     Dosage: 50 MG/M2 ON DAY 1, 8, 15, 22 AND 29.LAST DOSE PRIOR TO SAE: 10 MAY 2010
     Route: 042
     Dates: start: 20100426, end: 20100510
  7. LASIX [Concomitant]
     Indication: OEDEMA
     Route: 048
     Dates: start: 20100814, end: 20100816
  8. LASIX [Concomitant]
     Route: 048
     Dates: start: 20100817, end: 20100821
  9. SPIRIVA [Concomitant]
     Indication: CHRONIC OBSTRUCTIVE PULMONARY DISEASE
     Route: 048
  10. SYMBICORT [Concomitant]
     Indication: CHRONIC OBSTRUCTIVE PULMONARY DISEASE
     Dosage: TDD: 2 X 1  PUMPS, DOSE OF SYMBICORT WAS REPORTED AS: 160 UG/4,5 UG.
     Route: 048

REACTIONS (1)
  - IMPAIRED HEALING [None]
